FAERS Safety Report 4643725-5 (Version None)
Quarter: 2005Q2

REPORT INFORMATION
  Report Type: 
  Country: None (occurrence: None)
  Receive Date: 20050425
  Receipt Date: 20050413
  Transmission Date: 20051028
  Serious: Yes (Life-Threatening, Other)
  Sender: FDA-Public Use
  Company Number: JP-BRISTOL-MYERS SQUIBB COMPANY-12931028

PATIENT
  Age: 81 Year
  Sex: Female

DRUGS (1)
  1. TAXOL [Suspect]
     Indication: OVARIAN CANCER
     Route: 042
     Dates: start: 20050301, end: 20050412

REACTIONS (2)
  - BRONCHOSPASM [None]
  - CARDIO-RESPIRATORY ARREST [None]
